FAERS Safety Report 4456799-1 (Version None)
Quarter: 2004Q3

REPORT INFORMATION
  Report Type: 
  Country: None (occurrence: None)
  Receive Date: 20040923
  Receipt Date: 20040917
  Transmission Date: 20050211
  Serious: Yes (Hospitalization)
  Sender: FDA-Public Use
  Company Number: RU-BRISTOL-MYERS SQUIBB COMPANY-12705125

PATIENT
  Age: 52 Year
  Sex: Male

DRUGS (4)
  1. CYCLOPHOSPHAMIDE [Suspect]
     Indication: CHRONIC LYMPHOCYTIC LEUKAEMIA
     Dosage: START DATE:  25-FEB-2003.  DAYS 5, 6, AND 7 EVERY 28 DAYS.
     Route: 042
     Dates: start: 20030721, end: 20030721
  2. FLUDARABINE PHOSPHATE [Suspect]
     Indication: CHRONIC LYMPHOCYTIC LEUKAEMIA
     Dosage: START DATE:  25-FEB-2003.  DAYS 5, 6, AND 7 EVERY 28 DAYS.
     Route: 042
     Dates: start: 20030721, end: 20030721
  3. GENASENSE [Suspect]
     Indication: CHRONIC LYMPHOCYTIC LEUKAEMIA
     Dosage: START DATE:  21-FEB-2003.  DAYS 1 THROUGH 7 EVERY 28 DAYS.
     Route: 042
     Dates: start: 20030722, end: 20030722
  4. ETAMSYLATE [Concomitant]
     Dosage: INTRAVENOUS AND ORAL
     Dates: start: 20030730, end: 20030908

REACTIONS (1)
  - GASTRITIS HAEMORRHAGIC [None]
